FAERS Safety Report 7859221-8 (Version None)
Quarter: 2011Q4

REPORT INFORMATION
  Report Type: 
  Country: None (occurrence: None)
  Receive Date: 20111027
  Receipt Date: 20111027
  Transmission Date: 20120403
  Serious: Yes (Life-Threatening)
  Sender: FDA-Public Use
  Company Number: None

PATIENT
  Age: 80 Year
  Sex: Female
  Weight: 74.842 kg

DRUGS (17)
  1. LISINOPRIL [Concomitant]
     Route: 048
  2. XELODA [Suspect]
     Indication: BREAST CANCER METASTATIC
     Dosage: 1500 MILLIGRAMS
     Route: 048
     Dates: start: 20110719, end: 20111006
  3. RIVASTIGMINE [Concomitant]
     Route: 048
  4. HYDROCODONE BITARTRATE + ACETAMINOPHEN [Concomitant]
     Route: 048
  5. HYDROCHLOROTHIAZIDE [Concomitant]
     Route: 048
  6. LEVOFLOXACIN [Concomitant]
     Route: 048
  7. LEXAPRO [Concomitant]
     Route: 048
  8. OXYCONTIN [Concomitant]
     Route: 048
  9. TIMOLOL 0.5% SOLUTION [Concomitant]
     Route: 047
  10. GLIPIZIDE [Concomitant]
     Route: 048
  11. METFORMIN HCL [Concomitant]
     Route: 048
  12. ACTONEL [Concomitant]
     Route: 048
  13. SEROQUEL [Concomitant]
     Route: 048
  14. LEVOTHYROXINE SODIUM [Concomitant]
     Route: 048
  15. FOLIC ACID [Concomitant]
     Route: 048
  16. MULTI-VITAMIN [Concomitant]
     Route: 048
  17. ASPIRIN [Concomitant]
     Route: 048

REACTIONS (16)
  - ESCHERICHIA TEST POSITIVE [None]
  - DEMENTIA [None]
  - FAILURE TO THRIVE [None]
  - CEREBRAL ATROPHY [None]
  - FATIGUE [None]
  - MENTAL STATUS CHANGES [None]
  - DEHYDRATION [None]
  - ANAEMIA [None]
  - FLUID INTAKE REDUCED [None]
  - ASTHENIA [None]
  - THROMBOCYTOPENIA [None]
  - METASTASES TO CENTRAL NERVOUS SYSTEM [None]
  - DISEASE PROGRESSION [None]
  - DECREASED APPETITE [None]
  - IMPAIRED SELF-CARE [None]
  - CEREBRAL HAEMORRHAGE [None]
